FAERS Safety Report 10114840 (Version 2)
Quarter: 2015Q1

REPORT INFORMATION
  Report Type: Other
  Country: US (occurrence: US)
  Receive Date: 20140426
  Receipt Date: 20150220
  Transmission Date: 20150720
  Serious: Yes (Hospitalization, Other)
  Sender: FDA-Public Use
  Company Number: US-GSKPPD-2014GSK016039

PATIENT
  Age: 88 Year
  Sex: Male

DRUGS (3)
  1. AVANDIA [Suspect]
     Active Substance: ROSIGLITAZONE MALEATE
     Indication: DIABETES MELLITUS
     Dosage: DATES OF AVANDIA USE COULD NOT BE CONFIRMED IN RECORDS REVIEWED
     Route: 048
  2. WARFARIN [Concomitant]
     Active Substance: WARFARIN
     Dates: start: 20060123, end: 20060123
  3. CARVEDILOL. [Concomitant]
     Active Substance: CARVEDILOL
     Route: 048
     Dates: start: 200601

REACTIONS (5)
  - Coronary artery disease [Recovered/Resolved]
  - Cardiac failure congestive [Recovered/Resolved]
  - Acute myocardial infarction [Recovered/Resolved]
  - Aortic valve disease [Recovered/Resolved]
  - Myocardial ischaemia [Unknown]

NARRATIVE: CASE EVENT DATE: 20060123
